FAERS Safety Report 20640998 (Version 6)
Quarter: 2022Q4

REPORT INFORMATION
  Report Type: Spontaneous
  Country: US (occurrence: US)
  Receive Date: 20220327
  Receipt Date: 20221212
  Transmission Date: 20230113
  Serious: Yes (Hospitalization, Other)
  Sender: FDA-Public Use
  Company Number: US-CELGENE-USA-20220208032

PATIENT
  Age: 80 Year
  Sex: Male
  Weight: 97.16 kg

DRUGS (16)
  1. AZACITIDINE [Suspect]
     Active Substance: AZACITIDINE
     Indication: Myelodysplastic syndrome
     Dosage: FOR 7 DAYS WITHIN THE FIRST 9 CALENDAR DAYS OF EACH 28-DAY CYCLE (75 MG/M2,1IN 1 D)?ONGOING
     Route: 058
     Dates: start: 20220207
  2. VENETOCLAX [Suspect]
     Active Substance: VENETOCLAX
     Indication: Myelodysplastic syndrome
     Dosage: DAYS 1 - 14 OF EACH 28-DAY CYCLE, EVERY 1 DAYS; DAYS 1 - 14 OF EACH 28-DAY CYCLE, EVERY 1      DAYS;
     Route: 048
     Dates: start: 20220207, end: 20220215
  3. VENETOCLAX [Suspect]
     Active Substance: VENETOCLAX
     Dosage: DAYS 1 - 14 OF EACH 28-DAY CYCLE, EVERY 1 DAYS; DAYS 1 - 14 OF EACH 28-DAY CYCLE, EVERY 1      DAYS;
     Route: 048
     Dates: start: 20220314, end: 20220317
  4. VENETOCLAX [Suspect]
     Active Substance: VENETOCLAX
     Dosage: DAYS 1 - 14 OF EACH 28-DAY CYCLE, EVERY 1 DAYS; DAYS 1 - 14 OF EACH 28-DAY CYCLE, EVERY 1      DAYS;
     Route: 048
     Dates: start: 20220411
  5. SIMVASTATIN [Concomitant]
     Active Substance: SIMVASTATIN
     Indication: Hyperlipidaemia
     Route: 048
     Dates: start: 201801, end: 20220630
  6. TAMSULOSIN [Concomitant]
     Active Substance: TAMSULOSIN
     Indication: Benign prostatic hyperplasia
     Route: 048
  7. TAMSULOSIN [Concomitant]
     Active Substance: TAMSULOSIN
     Route: 048
  8. HONDA [ONDANSETRON] [Concomitant]
     Indication: Nausea
     Dosage: 1 AS REQUIRED
     Route: 048
     Dates: start: 20220207, end: 20220630
  9. HONDA [ONDANSETRON] [Concomitant]
     Dosage: 1 AS REQUIRED
     Route: 048
  10. HONDA [ONDANSETRON] [Concomitant]
     Dosage: 1 AS REQUIRED
     Route: 048
  11. BACTRIM [Concomitant]
     Active Substance: SULFAMETHOXAZOLE\TRIMETHOPRIM
     Indication: Infection prophylaxis
     Dosage: 800-1600MG, 3X/WEEK
     Route: 048
     Dates: start: 20220207, end: 20220630
  12. TAMSULOSIN HYDROCHLORIDE [Concomitant]
     Active Substance: TAMSULOSIN HYDROCHLORIDE
     Indication: Benign prostatic hyperplasia
     Dates: start: 2019
  13. VITAMIN B12 [Concomitant]
     Active Substance: CYANOCOBALAMIN
     Indication: Vitamin B12 deficiency
     Dosage: 1 IN 1 M
     Route: 048
     Dates: start: 202112, end: 20220630
  14. TYLENOL [Concomitant]
     Active Substance: ACETAMINOPHEN
     Indication: Pyrexia
     Dosage: 1 AS REQUIRED
     Route: 048
     Dates: start: 20220204, end: 20220630
  15. VALACYCLOVIR [Concomitant]
     Active Substance: VALACYCLOVIR HYDROCHLORIDE
     Indication: Infection prophylaxis
     Dosage: 2 IN 1 D?1000 MG DAILY
     Route: 048
     Dates: start: 20220206, end: 20220630
  16. DEXAMETHASONE [Concomitant]
     Active Substance: DEXAMETHASONE
     Indication: Premedication
     Dosage: 8 MG PRIOR TO CHEMO
     Route: 048
     Dates: start: 20220207, end: 20220630

REACTIONS (2)
  - Pneumonia [Recovered/Resolved]
  - Atrial fibrillation [Recovered/Resolved]

NARRATIVE: CASE EVENT DATE: 20220216
